FAERS Safety Report 5010655-9 (Version None)
Quarter: 2006Q2

REPORT INFORMATION
  Report Type: 
  Country: None (occurrence: None)
  Receive Date: 20060525
  Receipt Date: 20060322
  Transmission Date: 20061013
  Serious: Yes (Hospitalization, Other)
  Sender: FDA-Public Use
  Company Number: PHEH2006US03795

PATIENT
  Age: 60 Year
  Sex: Female

DRUGS (6)
  1. CLOZARIL [Suspect]
     Indication: SCHIZOPHRENIA
     Dosage: 25MG BID, 100MG QHS
     Route: 048
     Dates: end: 20060322
  2. DEPAKOTE [Concomitant]
     Indication: BIPOLAR DISORDER
     Dosage: 250 MG, BID
     Route: 048
     Dates: end: 20060206
  3. ASCORBIC ACID [Concomitant]
     Dosage: UNK, QD
  4. QUETIAPINE FUMARATE [Concomitant]
     Indication: SCHIZOPHRENIA
     Dosage: 25 MG, BID
     Dates: end: 20060510
  5. ATORVASTATIN [Concomitant]
  6. LEVOTHYROXINE SODIUM [Concomitant]

REACTIONS (9)
  - ABDOMINAL DISTENSION [None]
  - ABDOMINAL PAIN [None]
  - ASCITES [None]
  - BILE DUCT OBSTRUCTION [None]
  - CHOLECYSTECTOMY [None]
  - CHOLECYSTITIS [None]
  - HEPATIC ENZYME INCREASED [None]
  - HEPATITIS [None]
  - PARACENTESIS [None]
